FAERS Safety Report 18154041 (Version 3)
Quarter: 2020Q3

REPORT INFORMATION
  Report Type: Spontaneous
  Country: US (occurrence: US)
  Receive Date: 20200816
  Receipt Date: 20200901
  Transmission Date: 20201103
  Serious: No
  Sender: FDA-Public Use
  Company Number: US-SA-2020SA211455

PATIENT

DRUGS (1)
  1. CABLIVI [Suspect]
     Active Substance: CAPLACIZUMAB-YHDP
     Indication: THROMBOTIC MICROANGIOPATHY
     Dosage: 11 MG, QD
     Route: 058
     Dates: start: 20200805

REACTIONS (4)
  - Injection site pain [Unknown]
  - Fungal infection [Unknown]
  - Contusion [Unknown]
  - Injection site bruising [Unknown]

NARRATIVE: CASE EVENT DATE: 202008
